FAERS Safety Report 23391464 (Version 1)
Quarter: 2024Q1

REPORT INFORMATION
  Report Type: Spontaneous
  Country: CH (occurrence: CH)
  Receive Date: 20240111
  Receipt Date: 20240111
  Transmission Date: 20240410
  Serious: Yes (Hospitalization)
  Sender: FDA-Public Use
  Company Number: None

PATIENT
  Age: 17 Month
  Sex: Male
  Weight: 11 kg

DRUGS (24)
  1. CLONAZEPAM [Suspect]
     Active Substance: CLONAZEPAM
     Indication: Status epilepticus
     Dosage: IN TOTAL
     Dates: start: 20231116, end: 20231116
  2. DIAZEPAM [Suspect]
     Active Substance: DIAZEPAM
     Indication: Status epilepticus
     Dosage: IN TOTAL
     Route: 054
     Dates: start: 20231116, end: 20231116
  3. DEXMEDETOMIDINE HYDROCHLORIDE [Suspect]
     Active Substance: DEXMEDETOMIDINE HYDROCHLORIDE
     Indication: Agitation
     Dosage: PSE, IV DRIP
     Route: 042
     Dates: start: 20231116, end: 20231121
  4. KETAMINE [Suspect]
     Active Substance: KETAMINE
     Indication: Agitation
     Dosage: IN TOTAL
     Route: 042
     Dates: start: 20231116, end: 20231116
  5. KETAMINE [Suspect]
     Active Substance: KETAMINE
     Indication: Agitation
     Dosage: IN TOTAL
     Route: 042
     Dates: start: 20231117, end: 20231117
  6. KETAMINE [Suspect]
     Active Substance: KETAMINE
     Indication: Agitation
     Dosage: IN TOTAL
     Route: 042
     Dates: start: 20231117, end: 20231118
  7. KETAMINE [Suspect]
     Active Substance: KETAMINE
     Indication: Agitation
     Dosage: IN TOTAL
     Route: 042
     Dates: start: 20231118, end: 20231119
  8. KETAMINE [Suspect]
     Active Substance: KETAMINE
     Indication: Agitation
     Dosage: IN TOTAL
     Route: 042
     Dates: start: 20231121, end: 20231122
  9. KETAMINE [Suspect]
     Active Substance: KETAMINE
     Indication: Agitation
     Dosage: IN TOTAL
     Route: 042
     Dates: start: 20231122, end: 20231123
  10. KETAMINE [Suspect]
     Active Substance: KETAMINE
     Indication: Agitation
     Dosage: IN TOTAL
     Route: 042
     Dates: start: 20231123, end: 20231124
  11. KETAMINE [Suspect]
     Active Substance: KETAMINE
     Indication: Agitation
     Dosage: IN TOTAL
     Route: 042
     Dates: start: 20231124, end: 20231125
  12. KETAMINE [Suspect]
     Active Substance: KETAMINE
     Indication: Agitation
     Dosage: IN TOTAL
     Route: 042
     Dates: start: 20231125, end: 20231126
  13. KETAMINE [Suspect]
     Active Substance: KETAMINE
     Indication: Agitation
     Dosage: IN TOTAL
     Route: 042
     Dates: start: 20231126, end: 20231127
  14. KETAMINE [Suspect]
     Active Substance: KETAMINE
     Indication: Agitation
     Dosage: IN TOTAL
     Route: 042
     Dates: start: 20231127, end: 20231127
  15. MORPHINE [Suspect]
     Active Substance: MORPHINE
     Dates: start: 20231120, end: 20231121
  16. FENTANYL [Concomitant]
     Active Substance: FENTANYL\FENTANYL CITRATE
     Indication: Endotracheal intubation
     Dosage: DAILY DOSE: 1 MICROGRAM/KG
     Dates: start: 20231116, end: 20231116
  17. FENTANYL [Concomitant]
     Active Substance: FENTANYL\FENTANYL CITRATE
     Indication: Endotracheal intubation
     Dosage: DAILY DOSE: 0.5 MICROGRAM/KG
     Dates: start: 20231117, end: 20231117
  18. FENTANYL [Concomitant]
     Active Substance: FENTANYL\FENTANYL CITRATE
     Indication: Endotracheal intubation
     Dosage: DAILY DOSE: 1 MICROGRAM/KG
     Dates: start: 20231121, end: 20231121
  19. ROCURONIUM [Concomitant]
     Active Substance: ROCURONIUM BROMIDE
     Indication: Endotracheal intubation
     Dosage: DAILY DOSE: 0.9 MILLIGRAM/KG
     Dates: start: 20231116, end: 20231116
  20. ROCURONIUM [Concomitant]
     Active Substance: ROCURONIUM BROMIDE
     Indication: Endotracheal intubation
     Dosage: DAILY DOSE: 1 MILLIGRAM/KG
     Dates: start: 20231117, end: 20231117
  21. ROCURONIUM [Concomitant]
     Active Substance: ROCURONIUM BROMIDE
     Indication: Endotracheal intubation
     Dosage: DAILY DOSE: 1 MILLIGRAM/KG
     Dates: start: 20231121, end: 20231121
  22. PROPOFOL [Concomitant]
     Active Substance: PROPOFOL
     Indication: Endotracheal intubation
     Dosage: EN PSE ; IN TOTAL
     Dates: start: 20231116, end: 20231118
  23. PROPOFOL [Concomitant]
     Active Substance: PROPOFOL
     Indication: Endotracheal intubation
     Dosage: EN PSE, INTRAVENOUS DRIP
     Route: 042
     Dates: start: 20231118, end: 20231125
  24. CHLORAL [Concomitant]
     Dates: start: 20231117, end: 20231119

REACTIONS (4)
  - Hypercapnic coma [Recovered/Resolved]
  - Respiratory arrest [Recovered/Resolved]
  - Respiratory arrest [Recovered/Resolved]
  - Respiratory failure [Recovered/Resolved]

NARRATIVE: CASE EVENT DATE: 20231116
